FAERS Safety Report 7931868-X (Version None)
Quarter: 2011Q4

REPORT INFORMATION
  Report Type: 
  Country: None (occurrence: None)
  Receive Date: 20111121
  Receipt Date: 20111116
  Transmission Date: 20120403
  Serious: Yes (Other)
  Sender: FDA-Public Use
  Company Number: US-CELGENEUS-163-21880-11112491

PATIENT
  Age: 54 Year
  Sex: Male

DRUGS (2)
  1. REVLIMID [Suspect]
     Indication: MULTIPLE MYELOMA
     Route: 048
  2. DEXAMETHASONE [Concomitant]
     Dosage: HIGH DOSE
     Route: 065

REACTIONS (2)
  - MYELODYSPLASTIC SYNDROME [None]
  - PANCYTOPENIA [None]
